FAERS Safety Report 7794122-5 (Version None)
Quarter: 2011Q4

REPORT INFORMATION
  Report Type: 
  Country: None (occurrence: None)
  Receive Date: 20111004
  Receipt Date: 20110929
  Transmission Date: 20120403
  Serious: Yes (Death, Hospitalization)
  Sender: FDA-Public Use
  Company Number: CN-GENZYME-FLUD-1001387

PATIENT
  Sex: Male
  Weight: 69 kg

DRUGS (3)
  1. NEUPOGEN [Suspect]
     Indication: ACUTE MYELOID LEUKAEMIA
     Dosage: 334 MCG, QDX6
     Route: 042
     Dates: start: 20110620, end: 20110625
  2. CYTARABINE [Suspect]
     Indication: ACUTE MYELOID LEUKAEMIA
     Dosage: 3.3 G, QDX5
     Route: 042
     Dates: start: 20110621, end: 20110625
  3. FLUDARA [Suspect]
     Indication: ACUTE MYELOID LEUKAEMIA
     Dosage: 50 MG, QDX5
     Route: 042
     Dates: start: 20110621, end: 20110625

REACTIONS (1)
  - INFECTION [None]
